FAERS Safety Report 8508533-3 (Version None)
Quarter: 2012Q3

REPORT INFORMATION
  Report Type: 
  Country: None (occurrence: None)
  Receive Date: 20120713
  Receipt Date: 20120710
  Transmission Date: 20120928
  Serious: No
  Sender: FDA-Public Use
  Company Number: US-PFIZER INC-2012166433

PATIENT
  Sex: Female

DRUGS (4)
  1. SEROQUEL XR [Suspect]
     Indication: SLEEP DISORDER
     Dosage: ONE TABLET, DAILY
     Route: 048
     Dates: start: 20111119, end: 20111101
  2. ZOLOFT [Suspect]
     Indication: ANXIETY
     Dosage: 50 MG, DAILY
     Dates: start: 20111101, end: 20110101
  3. ZOLOFT [Suspect]
     Dosage: 25 MG, UNK
     Dates: start: 20110101, end: 20111201
  4. AMBIEN [Concomitant]
     Indication: SLEEP DISORDER
     Dosage: UNK

REACTIONS (3)
  - DISCOMFORT [None]
  - CONFUSIONAL STATE [None]
  - FEELING ABNORMAL [None]
